FAERS Safety Report 7021421-7 (Version None)
Quarter: 2010Q3

REPORT INFORMATION
  Report Type: 
  Country: None (occurrence: None)
  Receive Date: 20100929
  Receipt Date: 20100917
  Transmission Date: 20110219
  Serious: Yes (Hospitalization)
  Sender: FDA-Public Use
  Company Number: US-ELI_LILLY_AND_COMPANY-US201009006050

PATIENT
  Sex: Female

DRUGS (6)
  1. FORTEO [Suspect]
     Indication: OSTEOPOROSIS
     Dosage: 20 UG, DAILY (1/D)
     Dates: start: 20100701
  2. TIAZAC                             /00489702/ [Concomitant]
  3. COUMADIN [Concomitant]
  4. ALLEGRA [Concomitant]
  5. PRILOSEC [Concomitant]
  6. VITAMINS [Concomitant]

REACTIONS (4)
  - FALL [None]
  - ULNA FRACTURE [None]
  - UPPER LIMB FRACTURE [None]
  - WRIST FRACTURE [None]
